FAERS Safety Report 6018173-6 (Version None)
Quarter: 2008Q4

REPORT INFORMATION
  Report Type: 
  Country: None (occurrence: None)
  Receive Date: 20081223
  Receipt Date: 20081216
  Transmission Date: 20090506
  Serious: Yes (Hospitalization)
  Sender: FDA-Public Use
  Company Number: FR-AVENTIS-200814481FR

PATIENT
  Age: 89 Year
  Sex: Male

DRUGS (16)
  1. LASIX [Suspect]
     Indication: DRUG USE FOR UNKNOWN INDICATION
     Route: 042
     Dates: end: 20080516
  2. LASIX [Suspect]
     Route: 042
     Dates: start: 20080516, end: 20080526
  3. LASIX [Suspect]
     Route: 042
     Dates: start: 20080527, end: 20080528
  4. LASIX [Suspect]
     Route: 042
     Dates: start: 20080528, end: 20080529
  5. LASIX [Suspect]
     Route: 048
     Dates: start: 20080529
  6. CIFLOX                             /00697201/ [Suspect]
     Indication: DRUG USE FOR UNKNOWN INDICATION
     Route: 042
     Dates: start: 20080517, end: 20080524
  7. CEFTRIAXONE REF [Suspect]
     Indication: DRUG USE FOR UNKNOWN INDICATION
     Route: 042
     Dates: start: 20080517, end: 20080526
  8. RENITEC                            /00574901/ [Suspect]
     Indication: DRUG USE FOR UNKNOWN INDICATION
     Route: 048
  9. CALCIPARINE [Concomitant]
     Indication: DRUG USE FOR UNKNOWN INDICATION
     Route: 058
     Dates: end: 20080529
  10. HYDROCORTISONE [Concomitant]
     Indication: DRUG USE FOR UNKNOWN INDICATION
     Route: 048
     Dates: end: 20080517
  11. HYDROCORTISONE [Concomitant]
     Route: 048
     Dates: start: 20080517
  12. PLAVIX [Concomitant]
     Indication: DRUG USE FOR UNKNOWN INDICATION
     Route: 048
     Dates: end: 20080519
  13. LEVOTHYROXINE SODIUM [Concomitant]
     Indication: DRUG USE FOR UNKNOWN INDICATION
  14. KAYEXALATE [Concomitant]
     Indication: DRUG USE FOR UNKNOWN INDICATION
     Route: 048
     Dates: end: 20080523
  15. IPRATROPIUM BROMIDE [Concomitant]
     Indication: DRUG USE FOR UNKNOWN INDICATION
  16. CARDENSIEL [Concomitant]
     Indication: DRUG USE FOR UNKNOWN INDICATION
     Route: 048
     Dates: end: 20080523

REACTIONS (1)
  - RENAL FAILURE [None]
